FAERS Safety Report 5115403-X (Version None)
Quarter: 2006Q3

REPORT INFORMATION
  Report Type: 
  Country: None (occurrence: None)
  Receive Date: 20060922
  Receipt Date: 20060911
  Transmission Date: 20061208
  Serious: Yes (Other)
  Sender: FDA-Public Use
  Company Number: 2006111032

PATIENT
  Age: 18 Year
  Sex: Female

DRUGS (2)
  1. ZARONTIN [Suspect]
     Indication: CONVULSION
     Dosage: 750 MG (250 MG, 3 IN 1 D), ORAL
     Route: 048
     Dates: start: 20040101
  2. ALL OTHER THERAPEUTIC PRODUCTS [Suspect]
     Indication: CONVULSION
     Dates: end: 20060101

REACTIONS (1)
  - CONVULSION [None]
